FAERS Safety Report 24309734 (Version 1)
Quarter: 2024Q3

REPORT INFORMATION
  Report Type: Spontaneous
  Country: US (occurrence: US)
  Receive Date: 20240912
  Receipt Date: 20240912
  Transmission Date: 20241016
  Serious: No
  Sender: ENDO
  Company Number: ENDG22-01224

PATIENT
  Sex: Male

DRUGS (2)
  1. CLONAZEPAM [Suspect]
     Active Substance: CLONAZEPAM
     Indication: Generalised anxiety disorder
     Dosage: 0.25 MILLIGRAM, UNKNOWN
     Route: 065
     Dates: start: 2014
  2. CLONAZEPAM [Suspect]
     Active Substance: CLONAZEPAM
     Indication: Panic attack

REACTIONS (4)
  - Blood pressure increased [Unknown]
  - Therapeutic product effect incomplete [Unknown]
  - Product availability issue [Unknown]
  - Product taste abnormal [Unknown]
